FAERS Safety Report 7632527-3 (Version None)
Quarter: 2011Q3

REPORT INFORMATION
  Report Type: 
  Country: None (occurrence: None)
  Receive Date: 20110725
  Receipt Date: 20101006
  Transmission Date: 20111222
  Serious: Yes (Hospitalization)
  Sender: FDA-Public Use
  Company Number: US-BRISTOL-MYERS SQUIBB COMPANY-15312788

PATIENT
  Age: 81 Year
  Sex: Female
  Weight: 104 kg

DRUGS (4)
  1. METOPROLOL TARTRATE [Concomitant]
  2. BLOOD PRESSURE MEDICATION [Concomitant]
  3. COUMADIN [Suspect]
     Dosage: 7.5MG 3DAYS OUT OF THE WEEK
     Dates: start: 20080415
  4. BENICAR [Concomitant]
     Route: 048

REACTIONS (7)
  - INTERNATIONAL NORMALISED RATIO ABNORMAL [None]
  - EPISTAXIS [None]
  - TACHYCARDIA [None]
  - NAUSEA [None]
  - CHROMATURIA [None]
  - NEPHROLITHIASIS [None]
  - DIARRHOEA [None]
